FAERS Safety Report 12672167 (Version 1)
Quarter: 2016Q3

REPORT INFORMATION
  Report Type: Report from Study
  Country: NL (occurrence: NL)
  Receive Date: 20160822
  Receipt Date: 20160822
  Transmission Date: 20161109
  Serious: Yes (Death)
  Sender: FDA-Public Use
  Company Number: NL-CIPLA LTD.-2016NL17286

PATIENT

DRUGS (8)
  1. CISPLATIN. [Suspect]
     Active Substance: CISPLATIN
     Indication: NON-SMALL CELL LUNG CANCER STAGE III
     Dosage: 50 MG/M2, D1, 8
     Route: 065
  2. CARBOPLATIN. [Suspect]
     Active Substance: CARBOPLATIN
     Indication: NON-SMALL CELL LUNG CANCER STAGE III
     Dosage: D1 EVERY 3 WEEKS
     Route: 065
  3. GEMCITABINE [Suspect]
     Active Substance: GEMCITABINE\GEMCITABINE HYDROCHLORIDE
     Indication: NON-SMALL CELL LUNG CANCER STAGE III
     Dosage: 1250 MG/M2, D1, 8
     Route: 065
  4. CISPLATIN. [Suspect]
     Active Substance: CISPLATIN
     Dosage: 40 MG/M2, D22
     Route: 065
  5. VINORELBINE [Suspect]
     Active Substance: VINORELBINE\VINORELBINE TARTRATE
     Indication: NON-SMALL CELL LUNG CANCER STAGE III
     Dosage: 20 MG/M2, D1,8
     Route: 065
  6. VINORELBINE [Suspect]
     Active Substance: VINORELBINE\VINORELBINE TARTRATE
     Dosage: 15 MG/M2, D22, 29
     Route: 065
  7. CETUXIMAB [Suspect]
     Active Substance: CETUXIMAB
     Indication: NON-SMALL CELL LUNG CANCER STAGE III
     Dosage: 400 MG/M2, D7 (1 WEEK BEFORE THE START OF RT)
     Route: 065
  8. CETUXIMAB [Suspect]
     Active Substance: CETUXIMAB
     Dosage: 250 MG/M2, WEEKLY
     Route: 065

REACTIONS (1)
  - Haemoptysis [Fatal]
